FAERS Safety Report 4984463-9 (Version None)
Quarter: 2006Q2

REPORT INFORMATION
  Report Type: 
  Country: None (occurrence: None)
  Receive Date: 20060427
  Receipt Date: 20060413
  Transmission Date: 20061013
  Serious: Yes (Hospitalization)
  Sender: FDA-Public Use
  Company Number: JP-JPN-A200601226

PATIENT
  Age: 61 Year
  Sex: Male
  Weight: 61 kg

DRUGS (7)
  1. VALTREX [Suspect]
     Indication: HERPES ZOSTER
     Dosage: 1000MG PER DAY
     Route: 048
     Dates: start: 20060408, end: 20060409
  2. ADALAT [Concomitant]
     Indication: HYPERTENSION
     Route: 048
  3. DIHYDROXYCHOLECALCIFEROL [Concomitant]
     Indication: HYPERPARATHYROIDISM
     Dosage: .5MCG PER DAY
     Route: 048
  4. PRECIPITATED CALCIUM CARBONATE [Concomitant]
     Dosage: 3G PER DAY
     Route: 048
  5. SELBEX [Concomitant]
     Indication: GASTRITIS EROSIVE
     Dosage: 1.5G PER DAY
     Route: 048
  6. RENAGEL [Concomitant]
     Dosage: 2250MG PER DAY
     Route: 048
  7. LOXONIN [Concomitant]
     Indication: HERPES SIMPLEX
     Route: 048

REACTIONS (2)
  - CONFUSIONAL STATE [None]
  - THERAPEUTIC AGENT TOXICITY [None]
